FAERS Safety Report 9271328 (Version 1)
Quarter: 2013Q2

REPORT INFORMATION
  Report Type: Spontaneous
  Country: CH (occurrence: CH)
  Receive Date: 20130506
  Receipt Date: 20130506
  Transmission Date: 20140414
  Serious: Yes (Hospitalization)
  Sender: FDA-Public Use
  Company Number: PHHY2013CH041295

PATIENT
  Age: 77 Year
  Sex: Female

DRUGS (8)
  1. ACLASTA [Suspect]
     Dosage: 5 MG, ANNUALLY
     Route: 042
     Dates: start: 2008
  2. ACLASTA [Suspect]
     Dosage: UNK
     Route: 042
  3. ACLASTA [Suspect]
     Dosage: UNK
     Route: 042
  4. ACLASTA [Suspect]
     Dosage: UNK
     Route: 042
  5. CIPRALEX//ESCITALOPRAM [Concomitant]
     Dosage: 10 MG, QD
  6. PRAVASTATINE [Concomitant]
     Dosage: 20 MG, QD
  7. TELMISARTAN [Concomitant]
     Dosage: 1 DF, QD
  8. SYMBICORT [Concomitant]

REACTIONS (1)
  - Pathological fracture [Recovered/Resolved]
